FAERS Safety Report 15304204 (Version 1)
Quarter: 2018Q3

REPORT INFORMATION
  Report Type: Spontaneous
  Country: US (occurrence: US)
  Receive Date: 20180809
  Receipt Date: 20180809
  Transmission Date: 20181010
  Serious: No
  Sender: FDA-Public Use
  Company Number: None

PATIENT
  Age: 27 Year
  Sex: Male
  Weight: 51.75 kg

DRUGS (2)
  1. BRIVIACT [Suspect]
     Active Substance: BRIVARACETAM
     Indication: EPILEPSY
     Dosage: ?          QUANTITY:1 DF DOSAGE FORM;?
     Route: 048
     Dates: start: 20170616
  2. APTIOM [Concomitant]
     Active Substance: ESLICARBAZEPINE ACETATE

REACTIONS (2)
  - Nausea [None]
  - Product quality issue [None]

NARRATIVE: CASE EVENT DATE: 20180806
